FAERS Safety Report 9703301 (Version 3)
Quarter: 2014Q2

REPORT INFORMATION
  Report Type: Spontaneous
  Country: US (occurrence: US)
  Receive Date: 20131122
  Receipt Date: 20140422
  Transmission Date: 20141212
  Serious: Yes (Disabling)
  Sender: FDA-Public Use
  Company Number: US-JNJFOC-20131107931

PATIENT
  Sex: Female

DRUGS (7)
  1. TYLOX [Suspect]
     Indication: PAIN
     Route: 065
  2. DURAGESIC [Suspect]
     Indication: PAIN
     Route: 062
  3. SYNTHROID [Concomitant]
     Indication: BASEDOW^S DISEASE
     Route: 048
  4. PREMARIN [Concomitant]
     Route: 048
     Dates: start: 1992
  5. MUCINEX [Concomitant]
     Indication: CHRONIC OBSTRUCTIVE PULMONARY DISEASE
     Route: 048
  6. ZYRTEC D [Concomitant]
     Indication: MULTIPLE ALLERGIES
     Route: 048
  7. VALIUM [Concomitant]
     Indication: MUSCLE SPASMS
     Dosage: 1 IN VAGINA AND 1 IN RECTUM
     Route: 050

REACTIONS (3)
  - Disability [Not Recovered/Not Resolved]
  - Endometriosis [Recovered/Resolved]
  - Therapeutic response decreased [Recovered/Resolved]
